FAERS Safety Report 4959106-0 (Version None)
Quarter: 2006Q1

REPORT INFORMATION
  Report Type: 
  Country: None (occurrence: None)
  Receive Date: 20060330
  Receipt Date: 20060330
  Transmission Date: 20060701
  Serious: Yes (Other)
  Sender: FDA-Public Use
  Company Number: None

PATIENT
  Age: 49 Year
  Sex: Female
  Weight: 68.0396 kg

DRUGS (1)
  1. BONIVA [Suspect]
     Indication: OSTEOPENIA
     Dosage: 1  150 MG PILL  ONCE A MONTH PO
     Route: 048
     Dates: start: 20060326, end: 20060326

REACTIONS (11)
  - ABDOMINAL PAIN UPPER [None]
  - ARTHRALGIA [None]
  - ASTHENIA [None]
  - DIARRHOEA [None]
  - HEADACHE [None]
  - INFLUENZA [None]
  - INSOMNIA [None]
  - MALAISE [None]
  - PAIN [None]
  - PAIN IN EXTREMITY [None]
  - VOMITING [None]
